FAERS Safety Report 6984142-2 (Version None)
Quarter: 2010Q3

REPORT INFORMATION
  Report Type: 
  Country: None (occurrence: None)
  Receive Date: 20100915
  Receipt Date: 20090608
  Transmission Date: 20110219
  Serious: No
  Sender: FDA-Public Use
  Company Number: US-WYE-H09675109

PATIENT
  Age: 14 Month
  Sex: Male
  Weight: 10.44 kg

DRUGS (2)
  1. CHILDREN'S ADVIL [Suspect]
     Indication: PYREXIA
     Dosage: 1 TSP EVERY 8 HR;  CUMULATIVE DOSE TO EVENT: 3 TSP
     Route: 048
     Dates: start: 20090522, end: 20090529
  2. CHILDREN'S ADVIL [Suspect]
     Indication: PAIN

REACTIONS (4)
  - ABDOMINAL DISCOMFORT [None]
  - INCORRECT DOSE ADMINISTERED [None]
  - INSOMNIA [None]
  - VOMITING [None]
